FAERS Safety Report 25205283 (Version 2)
Quarter: 2025Q2

REPORT INFORMATION
  Report Type: Report from Study
  Country: US (occurrence: US)
  Receive Date: 20250417
  Receipt Date: 20250429
  Transmission Date: 20250717
  Serious: Yes (Disabling, Other)
  Sender: NOVARTIS
  Company Number: US-002147023-NVSC2025US054921

PATIENT
  Age: 44 Year
  Sex: Female
  Weight: 61 kg

DRUGS (1)
  1. COSENTYX [Suspect]
     Active Substance: SECUKINUMAB
     Indication: Hidradenitis
     Route: 058
     Dates: start: 20240205, end: 20250401

REACTIONS (9)
  - Hidradenitis [Not Recovered/Not Resolved]
  - Skin lesion [Unknown]
  - Pain [Unknown]
  - Tenderness [Unknown]
  - Condition aggravated [Not Recovered/Not Resolved]
  - Initial insomnia [Unknown]
  - Emotional distress [Unknown]
  - Discomfort [Unknown]
  - Disturbance in attention [Unknown]

NARRATIVE: CASE EVENT DATE: 20250304
